FAERS Safety Report 9746717 (Version 5)
Quarter: 2014Q2

REPORT INFORMATION
  Report Type: Spontaneous
  Country: PT (occurrence: FR)
  Receive Date: 20131211
  Receipt Date: 20140506
  Transmission Date: 20141212
  Serious: Yes (Hospitalization, Other)
  Sender: FDA-Public Use
  Company Number: 2013SP001787

PATIENT
  Age: 35 Year
  Sex: Female
  Weight: 87 kg

DRUGS (4)
  1. ZEBINIX (ESLICARBAZEPINE ACETATE) [Suspect]
     Indication: PARTIAL SEIZURES
     Route: 048
     Dates: start: 20130521, end: 20130611
  2. DEPAKINE CRONO /00228502/ [Suspect]
     Indication: PARTIAL SEIZURES
     Dates: end: 20130619
  3. GARDENAL /00023201/ [Concomitant]
     Indication: PARTIAL SEIZURES
  4. VIMPAT [Concomitant]
     Indication: PARTIAL SEIZURES
     Route: 048
     Dates: start: 20120730, end: 20130613

REACTIONS (7)
  - Agranulocytosis [Recovered/Resolved]
  - Thrombocytopenia [Recovered/Resolved]
  - Rash morbilliform [Recovered/Resolved]
  - Pyrexia [Recovered/Resolved]
  - Drug reaction with eosinophilia and systemic symptoms [Recovered/Resolved]
  - Eczema [Recovered/Resolved]
  - Rash [Recovered/Resolved]
